FAERS Safety Report 14769559 (Version 3)
Quarter: 2018Q3

REPORT INFORMATION
  Report Type: Spontaneous
  Country: CA (occurrence: CA)
  Receive Date: 20180417
  Receipt Date: 20180824
  Transmission Date: 20181010
  Serious: Yes (Other)
  Sender: FDA-Public Use
  Company Number: CA-CELLTRION INC.-2018CA019231

PATIENT

DRUGS (7)
  1. INFLECTRA [Suspect]
     Active Substance: INFLIXIMAB-DYYB
     Dosage: 444 MG, CYCLIC (6 MG/KG,EVERY 6  WEEKS)
     Route: 042
     Dates: start: 20180510
  2. HYDROXYCHLOROQUINE [Concomitant]
     Active Substance: HYDROXYCHLOROQUINE
     Dosage: UNK
     Dates: start: 201612
  3. INFLECTRA [Suspect]
     Active Substance: INFLIXIMAB-DYYB
     Dosage: 444 MG, CYCLIC (6 MG/KG,EVERY 6  WEEKS)
     Route: 042
  4. LEFLUNOMIDE. [Concomitant]
     Active Substance: LEFLUNOMIDE
     Dosage: UNK
     Dates: start: 201611
  5. METHOTREXATE. [Concomitant]
     Active Substance: METHOTREXATE
     Dosage: UNK
  6. PLAQUENIL                          /00072602/ [Concomitant]
     Active Substance: HYDROXYCHLOROQUINE DIPHOSPHATE
  7. INFLECTRA [Suspect]
     Active Substance: INFLIXIMAB-DYYB
     Indication: RHEUMATOID ARTHRITIS
     Dosage: 225 MG/Q EVERY 0,2,6 WEEKS, THEN EVERY 8 WEEKS
     Route: 042
     Dates: start: 20170704, end: 20180329

REACTIONS (4)
  - Rheumatoid arthritis [Unknown]
  - Underdose [Unknown]
  - Condition aggravated [Unknown]
  - Product use issue [Unknown]

NARRATIVE: CASE EVENT DATE: 20180809
